FAERS Safety Report 7243249-5 (Version None)
Quarter: 2011Q1

REPORT INFORMATION
  Report Type: 
  Country: None (occurrence: None)
  Receive Date: 20110118
  Receipt Date: 20101230
  Transmission Date: 20110831
  Serious: Yes (Other)
  Sender: FDA-Public Use
  Company Number: 2010SP065046

PATIENT
  Age: 7 Year
  Sex: Male
  Weight: 25.4014 kg

DRUGS (5)
  1. REGLAN [Concomitant]
  2. MIRALAX [Suspect]
     Indication: ENDOSCOPY
     Dosage: PO ; 51 GM;PO
     Route: 048
     Dates: start: 20101209
  3. MIRALAX [Suspect]
     Indication: ENDOSCOPY
     Dosage: PO ; 51 GM;PO
     Route: 048
     Dates: start: 20101101
  4. PENTASA [Concomitant]
  5. NEXIUM [Concomitant]

REACTIONS (2)
  - GASTROINTESTINAL DISORDER [None]
  - VOMITING [None]
